FAERS Safety Report 4372874-4 (Version None)
Quarter: 2004Q2

REPORT INFORMATION
  Report Type: 
  Country: None (occurrence: None)
  Receive Date: 20040526
  Receipt Date: 20040521
  Transmission Date: 20050107
  Serious: Yes (Hospitalization, Other)
  Sender: FDA-Public Use
  Company Number: 2004214592US

PATIENT
  Age: 65 Year
  Sex: Female
  Weight: 108.4 kg

DRUGS (3)
  1. AZULFIDINE EN-TABS [Suspect]
  2. ROFECOXIB [Suspect]
  3. DETROL LA (TOLTERODINE L-TARTRATE) [Concomitant]

REACTIONS (3)
  - INCOHERENT [None]
  - RENAL FAILURE ACUTE [None]
  - VERTIGO [None]
